FAERS Safety Report 7486720-3 (Version None)
Quarter: 2011Q2

REPORT INFORMATION
  Report Type: 
  Country: None (occurrence: None)
  Receive Date: 20110517
  Receipt Date: 20110513
  Transmission Date: 20111010
  Serious: Yes (Other)
  Sender: FDA-Public Use
  Company Number: US-PFIZER INC-2011103636

PATIENT
  Sex: Female

DRUGS (14)
  1. TERBINAFINE [Concomitant]
     Indication: ONYCHOMYCOSIS
     Dosage: 250 MG, DAILY
  2. DEMEROL [Concomitant]
     Dosage: UNK
  3. PROPRANOLOL [Concomitant]
     Dosage: 20 MG, 3X/DAY
  4. ATROMID-S [Concomitant]
     Dosage: UNK
  5. LOPID [Concomitant]
     Dosage: UNK
  6. SULAR [Concomitant]
     Dosage: 8.5 MG, 2X/DAY
  7. ZETIA [Concomitant]
     Dosage: 10 MG, DAILY
  8. ACIPHEX [Concomitant]
     Indication: GASTROOESOPHAGEAL REFLUX DISEASE
     Dosage: 20 MG, UNK
  9. CYMBALTA [Concomitant]
     Indication: FIBROMYALGIA
     Dosage: 60 MG, UNK
  10. LYRICA [Suspect]
     Indication: FIBROMYALGIA
     Dosage: 75 MG, UNK
     Route: 048
     Dates: start: 20100101, end: 20110401
  11. CRESTOR [Concomitant]
     Indication: BLOOD CHOLESTEROL
     Dosage: 20 MG, DAILY
  12. AMPYRA [Concomitant]
     Dosage: 130 MG, DAILY
  13. TRICOR [Concomitant]
     Dosage: UNK
  14. MICARDIS [Concomitant]
     Dosage: 40 MG, 2X/DAY

REACTIONS (11)
  - SURGERY [None]
  - CONJUNCTIVITIS [None]
  - DECREASED APPETITE [None]
  - GAIT DISTURBANCE [None]
  - MUSCULAR WEAKNESS [None]
  - TREMOR [None]
  - VISUAL IMPAIRMENT [None]
  - VITAMIN D DECREASED [None]
  - OEDEMA PERIPHERAL [None]
  - DERMATITIS [None]
  - EYE PRURITUS [None]
